FAERS Safety Report 20904980 (Version 1)
Quarter: 2022Q2

REPORT INFORMATION
  Report Type: Spontaneous
  Country: US (occurrence: US)
  Receive Date: 20220602
  Receipt Date: 20220602
  Transmission Date: 20220721
  Serious: Yes (Hospitalization, Other)
  Sender: FDA-Public Use
  Company Number: US-Shilpa Medicare Limited-SML-US-2022-00589

PATIENT
  Age: 58 Year
  Sex: Female

DRUGS (6)
  1. IRINOTECAN [Suspect]
     Active Substance: IRINOTECAN
     Indication: Small intestine carcinoma metastatic
  2. FLUOROURACIL [Suspect]
     Active Substance: FLUOROURACIL
     Indication: Small intestine carcinoma metastatic
     Dosage: 1600 MG/M2/DAY FOR 46 HOURS
  3. LEUCOVORIN [Suspect]
     Active Substance: LEUCOVORIN
     Indication: Small intestine carcinoma metastatic
  4. OXALIPLATIN [Suspect]
     Active Substance: OXALIPLATIN
     Indication: Small intestine carcinoma metastatic
  5. BEVACIZUMAB [Suspect]
     Active Substance: BEVACIZUMAB
     Indication: Small intestine carcinoma metastatic
  6. PEGFILGRASTIM [Suspect]
     Active Substance: PEGFILGRASTIM
     Indication: Small intestine carcinoma metastatic

REACTIONS (3)
  - Neutropenia [Unknown]
  - Carotidynia [Recovered/Resolved]
  - Drug ineffective [Unknown]
